FAERS Safety Report 9444894 (Version 1)
Quarter: 2013Q3

REPORT INFORMATION
  Report Type: Spontaneous
  Country: US (occurrence: US)
  Receive Date: 20130802
  Receipt Date: 20130802
  Transmission Date: 20140515
  Serious: Yes (Other)
  Sender: FDA-Public Use
  Company Number: SYM-2013-07407

PATIENT
  Age: 64 Year
  Sex: Male

DRUGS (1)
  1. XENAZINE (TETRABENAZINE)(TETRABENAZINE) [Suspect]
     Indication: HUNTINGTON^S DISEASE
     Route: 048
     Dates: start: 201003

REACTIONS (3)
  - Aggression [None]
  - Dyskinesia [None]
  - Physical assault [None]
